FAERS Safety Report 7828579-8 (Version None)
Quarter: 2011Q4

REPORT INFORMATION
  Report Type: 
  Country: None (occurrence: None)
  Receive Date: 20111020
  Receipt Date: 20111020
  Transmission Date: 20120403
  Serious: No
  Sender: FDA-Public Use
  Company Number: None

PATIENT
  Age: 72 Year
  Sex: Female
  Weight: 62.595 kg

DRUGS (1)
  1. IBANDRONATE SODIUM [Suspect]
     Indication: OSTEOPOROSIS
     Route: 042
     Dates: start: 20101112, end: 20110204

REACTIONS (6)
  - PAIN IN EXTREMITY [None]
  - ARTERIOSPASM CORONARY [None]
  - ARTHRALGIA [None]
  - INFLUENZA LIKE ILLNESS [None]
  - BONE PAIN [None]
  - BLADDER SPASM [None]
